FAERS Safety Report 10083355 (Version 1)
Quarter: 2014Q2

REPORT INFORMATION
  Report Type: Spontaneous
  Country: US (occurrence: None)
  Receive Date: 20140416
  Receipt Date: 20140416
  Transmission Date: 20141212
  Serious: Yes (Hospitalization)
  Sender: FDA-Public Use
  Company Number: None

PATIENT
  Age: 51 Year
  Sex: Female
  Weight: 101.15 kg

DRUGS (14)
  1. IXEMPRA [Suspect]
     Indication: BREAST CANCER METASTATIC
     Route: 042
     Dates: start: 20140321, end: 20140410
  2. DICLOFENAC [Concomitant]
  3. ASPIRIN [Concomitant]
  4. LEVOTHYROXINE [Concomitant]
  5. TRAZODONE [Concomitant]
  6. OXYCODONE [Concomitant]
  7. SPIRONOLACTONE [Concomitant]
  8. SIMVASTATIN [Concomitant]
  9. PROPRANOLOL [Concomitant]
  10. PROCHLORPERAZINE [Concomitant]
  11. METFORMIN [Concomitant]
  12. LORAZEPM [Concomitant]
  13. GABAPENTIN [Concomitant]
  14. ACETAMINOPHEN [Concomitant]

REACTIONS (1)
  - Diarrhoea haemorrhagic [None]
